FAERS Safety Report 7034423-1 (Version None)
Quarter: 2010Q4

REPORT INFORMATION
  Report Type: 
  Country: None (occurrence: None)
  Receive Date: 20101008
  Receipt Date: 20100930
  Transmission Date: 20110411
  Serious: Yes (Hospitalization, Other)
  Sender: FDA-Public Use
  Company Number: US-ABBOTT-10P-163-0671426-00

PATIENT
  Sex: Female
  Weight: 90.8 kg

DRUGS (4)
  1. HUMIRA [Suspect]
     Indication: CROHN'S DISEASE
     Dates: start: 20070701
  2. DESILANTE [Concomitant]
     Indication: PRODUCT USED FOR UNKNOWN INDICATION
  3. SORTAMET [Concomitant]
     Indication: POLYCYSTIC OVARIES
  4. ENTOCORT EC [Concomitant]
     Indication: CROHN'S DISEASE
     Dosage: STARTED IN HOSPITAL

REACTIONS (13)
  - ABDOMINAL PAIN [None]
  - BLOOD POTASSIUM DECREASED [None]
  - C-REACTIVE PROTEIN INCREASED [None]
  - CERVICAL ROOT PAIN [None]
  - CROHN'S DISEASE [None]
  - DEHYDRATION [None]
  - DIARRHOEA [None]
  - HYPOKALAEMIA [None]
  - INSOMNIA [None]
  - NAUSEA [None]
  - PYREXIA [None]
  - VOMITING [None]
  - WEIGHT DECREASED [None]
